FAERS Safety Report 17956920 (Version 1)
Quarter: 2020Q2

REPORT INFORMATION
  Report Type: Spontaneous
  Country: FR (occurrence: FR)
  Receive Date: 20200629
  Receipt Date: 20200629
  Transmission Date: 20200714
  Serious: Yes (Hospitalization)
  Sender: FDA-Public Use
  Company Number: FR-AUROBINDO-AUR-APL-2020-029242

PATIENT
  Age: 41 Year
  Sex: Female
  Weight: 85 kg

DRUGS (19)
  1. DACARBAZINE. [Suspect]
     Active Substance: DACARBAZINE
     Dosage: 375 MILLIGRAM/SQ. METER, CYCLICAL
     Route: 042
     Dates: start: 20171108
  2. LANSOPRAZOLE. [Suspect]
     Active Substance: LANSOPRAZOLE
     Indication: PRODUCT USED FOR UNKNOWN INDICATION
     Dosage: 30 MILLIGRAM, ONCE A DAY
     Route: 065
  3. PREDNISONE. [Suspect]
     Active Substance: PREDNISONE
     Indication: PRODUCT USED FOR UNKNOWN INDICATION
     Dosage: 80 MILLIGRAM, ONCE A DAY (FIRST DOSE)
     Route: 065
  4. VINBLASTINE [Suspect]
     Active Substance: VINBLASTINE
     Dosage: 5 MILLIGRAM/SQ. METER, CYCLICAL
     Route: 042
     Dates: start: 20171108
  5. AMOXICILLIN. [Suspect]
     Active Substance: AMOXICILLIN
     Indication: PRODUCT USED FOR UNKNOWN INDICATION
     Dosage: UNK
     Route: 065
  6. DOXORUBICIN [Suspect]
     Active Substance: DOXORUBICIN
     Dosage: 25 MILLIGRAM/SQ. METER, CYCLICAL
     Route: 042
  7. DEXAMETHASONE. [Suspect]
     Active Substance: DEXAMETHASONE
     Indication: PRODUCT USED FOR UNKNOWN INDICATION
     Dosage: 10 MILLIGRAM, CYCLICAL
     Route: 040
     Dates: start: 20171108
  8. VINBLASTINE [Suspect]
     Active Substance: VINBLASTINE
     Indication: HODGKIN^S DISEASE
     Dosage: 10 MILLIGRAM, CYCLICAL
     Route: 040
     Dates: start: 20171108
  9. VALACICLOVIR [Suspect]
     Active Substance: VALACYCLOVIR HYDROCHLORIDE
     Indication: PRODUCT USED FOR UNKNOWN INDICATION
     Dosage: 500 MILLIGRAM, ONCE A DAY
     Route: 065
  10. DEXAMETHASONE. [Suspect]
     Active Substance: DEXAMETHASONE
     Dosage: 10 MILLIGRAM, CYCLICAL
     Route: 042
     Dates: start: 20171108
  11. ENOXAPARIN [Suspect]
     Active Substance: ENOXAPARIN
     Indication: PRODUCT USED FOR UNKNOWN INDICATION
     Dosage: 4000 INTERNATIONAL UNIT, TWO TIMES A DAY
     Route: 065
  12. ENOXAPARIN [Suspect]
     Active Substance: ENOXAPARIN
     Dosage: 4000 INTERNATIONAL UNIT, ONCE A DAY
     Route: 065
  13. ONDANSETRON [Suspect]
     Active Substance: ONDANSETRON
     Indication: PRODUCT USED FOR UNKNOWN INDICATION
     Dosage: 8 MILLIGRAM, CYCLICAL
     Route: 040
  14. BLEOMYCIN [Suspect]
     Active Substance: BLEOMYCIN SULFATE
     Indication: HODGKIN^S DISEASE
     Dosage: 19.8 MILLIGRAM, CYCLICAL
     Route: 040
     Dates: start: 20171108
  15. ONDANSETRON [Suspect]
     Active Substance: ONDANSETRON
     Dosage: 8 MILLIGRAM, CYCLICAL
     Route: 042
  16. DACARBAZINE. [Suspect]
     Active Substance: DACARBAZINE
     Indication: HODGKIN^S DISEASE
     Dosage: 750 MILLIGRAM, CYCLICAL
     Route: 041
     Dates: start: 20171108
  17. DOXORUBICIN [Suspect]
     Active Substance: DOXORUBICIN
     Indication: HODGKIN^S DISEASE
     Dosage: 50 MILLIGRAM, CYCLICAL
     Route: 040
  18. PREDNISONE. [Suspect]
     Active Substance: PREDNISONE
     Dosage: 40 MILLIGRAM, ONCE A DAY
     Route: 065
  19. BLEOMYCIN [Suspect]
     Active Substance: BLEOMYCIN SULFATE
     Dosage: 10 MILLIGRAM/SQ. METER, CYCLICAL
     Route: 042
     Dates: start: 20171108

REACTIONS (6)
  - Contraindicated product administered [Recovered/Resolved]
  - Off label use [Unknown]
  - Preterm premature rupture of membranes [Recovered/Resolved]
  - Caesarean section [Recovered/Resolved]
  - Maternal exposure during pregnancy [Recovered/Resolved]
  - Exposure during pregnancy [Unknown]

NARRATIVE: CASE EVENT DATE: 2017
